FAERS Safety Report 7948340 (Version 5)
Quarter: 2014Q1

REPORT INFORMATION
  Report Type: Spontaneous
  Country: US (occurrence: US)
  Receive Date: 20110517
  Receipt Date: 20140109
  Transmission Date: 20141002
  Serious: Yes (Other)
  Sender: FDA-Public Use
  Company Number: US-BAYER-2010-006263

PATIENT
  Age: 23 Year
  Sex: Female
  Weight: 97.51 kg

DRUGS (10)
  1. YASMIN [Suspect]
     Dosage: UNK
     Dates: start: 2003, end: 2005
  2. ALLEGRA [Concomitant]
     Route: 048
  3. RHINOCORT [Concomitant]
     Route: 045
  4. TAGAMET [Concomitant]
     Route: 048
  5. IMODIUM [Concomitant]
     Route: 048
  6. IBUPROFEN [Concomitant]
     Route: 048
  7. PATANOL [Concomitant]
  8. ORASEPT [Concomitant]
     Route: 048
  9. FLUOXETINE [Concomitant]
     Route: 048
  10. ACIPHEX [Concomitant]
     Route: 048

REACTIONS (8)
  - Cholecystitis chronic [None]
  - Cholelithiasis [None]
  - Abdominal pain [None]
  - Emotional distress [None]
  - Anxiety [None]
  - Pain [None]
  - Fear [None]
  - Discomfort [None]
